FAERS Safety Report 5338443-4 (Version None)
Quarter: 2007Q2

REPORT INFORMATION
  Report Type: 
  Country: None (occurrence: None)
  Receive Date: 20070530
  Receipt Date: 20070523
  Transmission Date: 20071010
  Serious: Yes (Death, Hospitalization)
  Sender: FDA-Public Use
  Company Number: US-ELI_LILLY_AND_COMPANY-US200703005069

PATIENT
  Age: 68 Year
  Sex: Male
  Weight: 114.74 kg

DRUGS (15)
  1. SYNTHROID [Concomitant]
     Dosage: 0.2 MG, DAILY (1/D)
  2. METFORMIN HCL [Concomitant]
     Dosage: 1000 MG, 2/D
  3. PRAVACHOL [Concomitant]
     Dosage: 40 MG, DAILY (1/D)
  4. MS CONTIN [Concomitant]
     Dosage: 15 MG, 2/D
  5. GLYBURIDE [Concomitant]
     Dosage: 6 MG, DAILY (1/D)
  6. PAXIL [Concomitant]
     Dosage: 45 MG, DAILY (1/D)
  7. ACTOS [Concomitant]
     Dosage: 30 MG, DAILY (1/D)
  8. PREVACID [Concomitant]
     Dosage: 30 MG, DAILY (1/D)
  9. FOLIC ACID [Concomitant]
     Indication: VITAMIN SUPPLEMENTATION
     Dosage: 1 MG, DAILY (1/D)
  10. TUMS [Concomitant]
  11. MAGNESIUM OXIDE [Concomitant]
  12. VITAMIN B-12 [Concomitant]
     Indication: VITAMIN SUPPLEMENTATION
  13. ALIMTA [Suspect]
     Indication: LUNG CANCER METASTATIC
     Route: 042
     Dates: start: 20050701
  14. ALIMTA [Suspect]
     Route: 042
     Dates: start: 20050804
  15. PROCRIT [Concomitant]

REACTIONS (7)
  - ANAEMIA [None]
  - DIARRHOEA [None]
  - FEBRILE NEUTROPENIA [None]
  - MALIGNANT NEOPLASM PROGRESSION [None]
  - NEUTROPENIA [None]
  - PNEUMONIA [None]
  - VOMITING [None]
